FAERS Safety Report 17882061 (Version 1)
Quarter: 2020Q2

REPORT INFORMATION
  Report Type: Other
  Country: PL (occurrence: PL)
  Receive Date: 20200610
  Receipt Date: 20200610
  Transmission Date: 20200714
  Serious: Yes (Hospitalization, Other)
  Sender: FDA-Public Use
  Company Number: PL-TOPROL ACQUISITION LLC-2020-TOP-000263

PATIENT
  Age: 66 Year
  Sex: Male

DRUGS (10)
  1. ATORVASTATIN CALCIUM. [Suspect]
     Active Substance: ATORVASTATIN CALCIUM
     Indication: PRODUCT USED FOR UNKNOWN INDICATION
     Dosage: 40 OT, BID, DAILY
  2. CLOPIDOGREL [Suspect]
     Active Substance: CLOPIDOGREL BISULFATE
     Indication: PRODUCT USED FOR UNKNOWN INDICATION
     Dosage: 75 OT, BID, DAILY
  3. ENTRESTO [Suspect]
     Active Substance: SACUBITRIL\VALSARTAN
     Dosage: 1 DF (24/26 MG), BID
  4. ACETYLSALICYLIC ACID [Suspect]
     Active Substance: ASPIRIN
     Indication: PRODUCT USED FOR UNKNOWN INDICATION
     Dosage: 75 OT, BID, DAILY
  5. FUROSEMIDE. [Concomitant]
     Active Substance: FUROSEMIDE
     Dosage: 1-1/2-0
  6. FUROSEMIDE. [Concomitant]
     Active Substance: FUROSEMIDE
     Dosage: 3 DF, TID (2 TABL IN THE MORNING 1 TABL AT NOON
  7. METOPROLOL SUCCINATE. [Suspect]
     Active Substance: METOPROLOL SUCCINATE
     Indication: PRODUCT USED FOR UNKNOWN INDICATION
     Dosage: 50 OT, BID, DAILY
     Route: 048
  8. RIVAROXABAN [Suspect]
     Active Substance: RIVAROXABAN
     Indication: PRODUCT USED FOR UNKNOWN INDICATION
     Dosage: 15 OT, BID, DAILY
  9. SPIRONOL [Concomitant]
     Active Substance: SPIRONOLACTONE
     Dosage: 1 DF, QD, A TWO-DAY BREAK, THEN 25MG AT NOON
  10. KALIPOZ [Concomitant]
     Active Substance: POTASSIUM CHLORIDE
     Dosage: 1 DF, QD

REACTIONS (3)
  - Dizziness [Recovered/Resolved]
  - Cardiac failure chronic [Not Recovered/Not Resolved]
  - Blood pressure decreased [Recovered/Resolved]
